FAERS Safety Report 25936380 (Version 1)
Quarter: 2025Q4

REPORT INFORMATION
  Report Type: Spontaneous
  Country: RU (occurrence: RU)
  Receive Date: 20251017
  Receipt Date: 20251017
  Transmission Date: 20260117
  Serious: Yes (Other)
  Sender: NOVARTIS
  Company Number: RU-002147023-NVSC2025RU155259

PATIENT
  Age: 45 Year
  Sex: Female

DRUGS (6)
  1. CYCLOSPORINE [Suspect]
     Active Substance: CYCLOSPORINE
     Indication: Immunosuppressant drug therapy
     Dosage: 200 MG, QD
     Route: 065
  2. CYCLOSPORINE [Suspect]
     Active Substance: CYCLOSPORINE
     Indication: Aplastic anaemia
     Dosage: UNK
     Route: 065
  3. CYCLOSPORINE [Suspect]
     Active Substance: CYCLOSPORINE
     Indication: Paroxysmal nocturnal haemoglobinuria
     Dosage: 100 MG, BID
     Route: 065
  4. ECULIZUMAB [Suspect]
     Active Substance: ECULIZUMAB
     Indication: Breakthrough haemolysis
     Dosage: 600 MG, QW (FOR FIRST 4 WEEKS)
     Route: 065
  5. ECULIZUMAB [Suspect]
     Active Substance: ECULIZUMAB
     Indication: Paroxysmal nocturnal haemoglobinuria
     Dosage: 600 MG, QW (FOR FIRST 4 WEEKS)
     Route: 065
  6. ECULIZUMAB [Suspect]
     Active Substance: ECULIZUMAB
     Dosage: 600 MG, QW (FOR FIRST 4 WEEKS)
     Route: 065
     Dates: start: 202409

REACTIONS (14)
  - Paroxysmal nocturnal haemoglobinuria [Unknown]
  - Anaemia [Unknown]
  - Blood lactate dehydrogenase increased [Unknown]
  - Yellow skin [Unknown]
  - Abdominal pain [Unknown]
  - Renal impairment [Unknown]
  - Dysphagia [Unknown]
  - Breakthrough haemolysis [Unknown]
  - Disease progression [Unknown]
  - Superficial vein thrombosis [Unknown]
  - Pulmonary embolism [Unknown]
  - Thrombosis [Unknown]
  - Cholelithiasis [Unknown]
  - Off label use [Unknown]

NARRATIVE: CASE EVENT DATE: 20210601
